FAERS Safety Report 4504056-7 (Version None)
Quarter: 2004Q4

REPORT INFORMATION
  Report Type: 
  Country: None (occurrence: None)
  Receive Date: 20041115
  Receipt Date: 20040827
  Transmission Date: 20050328
  Serious: Yes (Other)
  Sender: FDA-Public Use
  Company Number: 2004-00420

PATIENT
  Age: 69 Year
  Sex: Female
  Weight: 70.3 kg

DRUGS (2)
  1. VELCADE [Suspect]
     Dosage: 2.20 MG, 2/WEEK, IV BOLUS
     Route: 042
     Dates: start: 20040706, end: 20040820
  2. VELCADE [Suspect]
     Dosage: 2.20 MG, 2/WEEK, IV BOLUS
     Route: 042
     Dates: start: 20040817, end: 20040820

REACTIONS (3)
  - ERYTHEMA [None]
  - EYE SWELLING [None]
  - RASH GENERALISED [None]
